FAERS Safety Report 19080207 (Version 1)
Quarter: 2021Q1

REPORT INFORMATION
  Report Type: Spontaneous
  Country: PL (occurrence: PL)
  Receive Date: 20210331
  Receipt Date: 20210331
  Transmission Date: 20210420
  Serious: Yes (Death, Hospitalization, Other)
  Sender: FDA-Public Use
  Company Number: PL-VALIDUS PHARMACEUTICALS LLC-PL-2021VAL000875

PATIENT
  Age: 35 Year
  Sex: Female
  Weight: 100 kg

DRUGS (8)
  1. SANDOGLOBULIN [Suspect]
     Active Substance: HUMAN IMMUNOGLOBULIN G
     Indication: PRODUCT USED FOR UNKNOWN INDICATION
     Dosage: UNK
     Route: 065
  2. LAMOTRIGINE. [Suspect]
     Active Substance: LAMOTRIGINE
     Indication: SCHIZOPHRENIA
     Dosage: UNK
     Route: 065
  3. CICLOSPORIN [Suspect]
     Active Substance: CYCLOSPORINE
     Indication: PRODUCT USED FOR UNKNOWN INDICATION
     Dosage: UNK
     Route: 065
  4. SUFENTANIL [Suspect]
     Active Substance: SUFENTANIL
     Indication: SEDATION
     Dosage: UNK
     Route: 041
  5. ALBUMIN [Suspect]
     Active Substance: ALBUMIN HUMAN
     Indication: PRODUCT USED FOR UNKNOWN INDICATION
     Dosage: UNK
     Route: 065
  6. SULFACETAMIDE. [Suspect]
     Active Substance: SULFACETAMIDE
     Indication: PRODUCT USED FOR UNKNOWN INDICATION
     Dosage: UNK
     Route: 065
  7. FUROSEMIDE. [Suspect]
     Active Substance: FUROSEMIDE
     Indication: POLYURIA
     Dosage: UNK
     Route: 065
  8. MIDAZOLAM. [Suspect]
     Active Substance: MIDAZOLAM
     Indication: SEDATION
     Dosage: UNK
     Route: 041

REACTIONS (21)
  - Hepatic enzyme increased [Unknown]
  - Blood sodium decreased [Unknown]
  - Hypoalbuminaemia [Unknown]
  - Condition aggravated [Unknown]
  - Blood urine present [Unknown]
  - Neutrophil count increased [Unknown]
  - Protein urine present [Unknown]
  - Nasal congestion [Unknown]
  - Pyrexia [Unknown]
  - Toxic epidermal necrolysis [Unknown]
  - Conjunctival hyperaemia [Unknown]
  - Pleural effusion [Unknown]
  - Urobilinogen urine increased [Unknown]
  - Mucosal erosion [Unknown]
  - Cardiac arrest [Fatal]
  - Mouth haemorrhage [Unknown]
  - Electrolyte imbalance [Unknown]
  - Drug ineffective [Fatal]
  - Conjunctival erosion [Unknown]
  - Oedema peripheral [Unknown]
  - Blood calcium abnormal [Unknown]
